FAERS Safety Report 7501044-3 (Version None)
Quarter: 2011Q2

REPORT INFORMATION
  Report Type: 
  Country: None (occurrence: None)
  Receive Date: 20110524
  Receipt Date: 20100601
  Transmission Date: 20111010
  Serious: No
  Sender: FDA-Public Use
  Company Number: US-NOVEN-ALL1-2010-03160

PATIENT

DRUGS (5)
  1. ALBUTEROL [Concomitant]
     Dosage: UNK, UNKNOWN
     Route: 055
     Dates: start: 20040101
  2. FLOVENT [Concomitant]
     Dosage: UNK, UNKNOWN
     Route: 055
     Dates: start: 20040101
  3. ZYRTEC [Concomitant]
     Dosage: 10 MG, 1X/DAY:QD
     Route: 048
     Dates: start: 20040101
  4. DAYTRANA [Suspect]
     Dosage: 20 MG, 1X/DAY:QD
     Route: 062
     Dates: start: 20100531
  5. ZYRTEC [Concomitant]

REACTIONS (5)
  - APPLICATION SITE ERYTHEMA [None]
  - INCORRECT STORAGE OF DRUG [None]
  - APPLICATION SITE PRURITUS [None]
  - PRODUCT QUALITY ISSUE [None]
  - APPLICATION SITE PAIN [None]
